FAERS Safety Report 20663757 (Version 1)
Quarter: 2022Q2

REPORT INFORMATION
  Report Type: Spontaneous
  Country: NL (occurrence: NL)
  Receive Date: 20220401
  Receipt Date: 20220401
  Transmission Date: 20220721
  Serious: Yes (Other)
  Sender: FDA-Public Use
  Company Number: None

PATIENT
  Sex: Female
  Weight: 85 kg

DRUGS (1)
  1. DICLOFENAC POTASSIUM [Suspect]
     Active Substance: DICLOFENAC POTASSIUM
     Indication: Abdominal pain
     Dosage: VARIABLE, SOMETIMES EVERY 2 HOURS A TABLET; THERAPY END DATE: ASKU; DICLOFENAC POTASSIUM TABLET COAT
     Route: 065
     Dates: start: 202203

REACTIONS (1)
  - Duodenal ulcer haemorrhage [Recovering/Resolving]
